FAERS Safety Report 4802608-8 (Version None)
Quarter: 2005Q4

REPORT INFORMATION
  Report Type: 
  Country: None (occurrence: None)
  Receive Date: 20051014
  Receipt Date: 20050304
  Transmission Date: 20060501
  Serious: Yes (Other)
  Sender: FDA-Public Use
  Company Number: 2005042436

PATIENT
  Age: 37 Year
  Sex: Female
  Weight: 63.9572 kg

DRUGS (2)
  1. NEURONTIN [Suspect]
     Indication: NERVE INJURY
     Dosage: 1200 MG (1 IN 1 D), ORAL
     Route: 048
     Dates: start: 20050101
  2. IBUPROFEN [Concomitant]

REACTIONS (5)
  - ALOPECIA [None]
  - SKIN DISCOLOURATION [None]
  - SOMNOLENCE [None]
  - VISION BLURRED [None]
  - WEIGHT INCREASED [None]
